FAERS Safety Report 10522887 (Version 2)
Quarter: 2014Q4

REPORT INFORMATION
  Report Type: Spontaneous
  Country: US (occurrence: US)
  Receive Date: 20141016
  Receipt Date: 20141016
  Transmission Date: 20150528
  Serious: Yes (Hospitalization, Other)
  Sender: FDA-Public Use
  Company Number: US-GLAXOSMITHKLINE-B0724877A

PATIENT
  Sex: Male

DRUGS (2)
  1. AVANDAMET [Suspect]
     Active Substance: METFORMIN HYDROCHLORIDE\ROSIGLITAZONE MALEATE
     Indication: DIABETES MELLITUS
     Dosage: UNK UNK, BID
     Route: 048
     Dates: start: 200301, end: 200503
  2. AVANDIA [Suspect]
     Active Substance: ROSIGLITAZONE MALEATE
     Indication: DIABETES MELLITUS
     Dosage: 4 MG, BID
     Route: 048
     Dates: start: 200401, end: 200608

REACTIONS (7)
  - Cardiac failure congestive [Unknown]
  - Arteriosclerosis coronary artery [Unknown]
  - Cardiac arrest [Unknown]
  - Myocardial infarction [Not Recovered/Not Resolved]
  - Coronary artery disease [Unknown]
  - Diabetes mellitus [Unknown]
  - Ventricular tachycardia [Unknown]
